FAERS Safety Report 9880901 (Version 1)
Quarter: 2014Q1

REPORT INFORMATION
  Report Type: Spontaneous
  Country: US (occurrence: US)
  Receive Date: 20140207
  Receipt Date: 20140207
  Transmission Date: 20141002
  Serious: Yes (Hospitalization, Other)
  Sender: FDA-Public Use
  Company Number: US-SA-2014SA015156

PATIENT
  Age: 48 Year
  Sex: Female

DRUGS (2)
  1. APIDRA SOLOSTAR [Suspect]
     Indication: TYPE 2 DIABETES MELLITUS
     Dosage: SLIDING SCALE TWICE DAILY
     Route: 051
     Dates: start: 201209
  2. SOLOSTAR [Concomitant]
     Dates: start: 201209

REACTIONS (9)
  - Paralysis [Unknown]
  - Speech disorder [Unknown]
  - Condition aggravated [Unknown]
  - Convulsion [Unknown]
  - Hypotension [Unknown]
  - Wheezing [Unknown]
  - Hyperhidrosis [Unknown]
  - Urticaria [Unknown]
  - Blood glucose increased [Unknown]
